FAERS Safety Report 14232302 (Version 1)
Quarter: 2017Q4

REPORT INFORMATION
  Report Type: Spontaneous
  Country: US (occurrence: US)
  Receive Date: 20171128
  Receipt Date: 20171128
  Transmission Date: 20180321
  Serious: No
  Sender: FDA-Public Use
  Company Number: US-BAYER-2017-220330

PATIENT
  Age: 80 Year
  Sex: Female
  Weight: 60 kg

DRUGS (14)
  1. ALEVE [Suspect]
     Active Substance: NAPROXEN SODIUM
     Indication: PAIN
     Dosage: 1 DF, QD
     Route: 048
     Dates: start: 201709
  2. ALEVE [Suspect]
     Active Substance: NAPROXEN SODIUM
     Indication: PAIN
     Dosage: 1 DF, QD
     Route: 048
  3. MAGNESIUM CITRATE [MAGNESIUM CITRATE] [Concomitant]
     Dosage: UNK
  4. LYCOPENE [Concomitant]
     Active Substance: LYCOPENE
  5. POTASSIUM [Concomitant]
     Active Substance: POTASSIUM
  6. CINNAMON. [Concomitant]
     Active Substance: CINNAMON
  7. VITAMIN D [Concomitant]
     Active Substance: CHOLECALCIFEROL
  8. COQ10 [Concomitant]
     Active Substance: UBIDECARENONE
  9. BIOTIN [Concomitant]
     Active Substance: BIOTIN
  10. ALPHA LIPOIC ACID [Concomitant]
     Active Substance: .ALPHA.-LIPOIC ACID
  11. VITAMIN E [Concomitant]
     Active Substance: .ALPHA.-TOCOPHEROL
  12. CENTRUM SILVER [Concomitant]
     Active Substance: MINERALS\VITAMINS
  13. VITAMIN C [Concomitant]
     Active Substance: ASCORBIC ACID
  14. VITAMIN B12 [Concomitant]
     Active Substance: CYANOCOBALAMIN

REACTIONS (1)
  - Product use issue [Unknown]

NARRATIVE: CASE EVENT DATE: 201709
